FAERS Safety Report 5268418-5 (Version None)
Quarter: 2007Q1

REPORT INFORMATION
  Report Type: 
  Country: None (occurrence: None)
  Receive Date: 20070319
  Receipt Date: 20070309
  Transmission Date: 20070707
  Serious: Yes (Other)
  Sender: FDA-Public Use
  Company Number: US-GLAXOSMITHKLINE-A0643450A

PATIENT
  Sex: Female

DRUGS (1)
  1. REQUIP [Suspect]
     Indication: RESTLESS LEGS SYNDROME
     Route: 048
     Dates: start: 20060101, end: 20070101

REACTIONS (8)
  - ALCOHOL USE [None]
  - ECONOMIC PROBLEM [None]
  - FEAR [None]
  - FEELING GUILTY [None]
  - FEELING OF DESPAIR [None]
  - PATHOLOGICAL GAMBLING [None]
  - STRESS [None]
  - SUICIDAL IDEATION [None]
